FAERS Safety Report 8355076-6 (Version None)
Quarter: 2012Q2

REPORT INFORMATION
  Report Type: 
  Country: None (occurrence: None)
  Receive Date: 20120511
  Receipt Date: 20120501
  Transmission Date: 20120825
  Serious: Yes (Other)
  Sender: FDA-Public Use
  Company Number: JP-ELI_LILLY_AND_COMPANY-JP201204008413

PATIENT
  Age: 65 Year
  Sex: Female

DRUGS (1)
  1. ALIMTA [Suspect]
     Indication: LUNG CANCER METASTATIC
     Dosage: UNK

REACTIONS (6)
  - CONTUSION [None]
  - ALTERED STATE OF CONSCIOUSNESS [None]
  - PERSONALITY CHANGE [None]
  - FALL [None]
  - LEUKOENCEPHALOPATHY [None]
  - SPEECH DISORDER [None]
